FAERS Safety Report 7968084-1 (Version None)
Quarter: 2011Q4

REPORT INFORMATION
  Report Type: 
  Country: None (occurrence: None)
  Receive Date: 20111121
  Receipt Date: 20110819
  Transmission Date: 20120403
  Serious: No
  Sender: FDA-Public Use
  Company Number: 1000023095

PATIENT
  Age: 52 Year
  Sex: Male

DRUGS (5)
  1. VIIBRYD [Suspect]
     Indication: DEPRESSION
     Dosage: 10 MG (10 MG, 1 IN 1 D), ORAL
     Route: 048
     Dates: start: 20110818
  2. VICODIN (VICODIN) (VICODIN) [Concomitant]
  3. BACLOFEN [Concomitant]
  4. LORAZEPAM [Concomitant]
  5. RANITIDINE [Concomitant]

REACTIONS (3)
  - PALPITATIONS [None]
  - PARAESTHESIA [None]
  - ANXIETY [None]
